FAERS Safety Report 8319995-9 (Version None)
Quarter: 2012Q2

REPORT INFORMATION
  Report Type: 
  Country: None (occurrence: None)
  Receive Date: 20120427
  Receipt Date: 20120423
  Transmission Date: 20120825
  Serious: Yes (Other)
  Sender: FDA-Public Use
  Company Number: DE-GILEAD-2012-0054188

PATIENT
  Sex: Male

DRUGS (4)
  1. NORVIR [Concomitant]
     Indication: HIV INFECTION
     Route: 048
  2. TRUVADA [Concomitant]
     Indication: HIV INFECTION
     Route: 048
  3. REYATAZ [Concomitant]
     Indication: HIV INFECTION
     Route: 048
  4. AMBRISENTAN [Suspect]
     Indication: PRODUCT USED FOR UNKNOWN INDICATION
     Route: 048

REACTIONS (2)
  - YELLOW SKIN [None]
  - HEPATIC ENZYME INCREASED [None]
